FAERS Safety Report 5122338-5 (Version None)
Quarter: 2006Q4

REPORT INFORMATION
  Report Type: 
  Country: None (occurrence: None)
  Receive Date: 20061004
  Receipt Date: 20060929
  Transmission Date: 20070319
  Serious: Yes (Other)
  Sender: FDA-Public Use
  Company Number: 007932

PATIENT
  Age: 29 Year
  Sex: Female
  Weight: 61.2 kg

DRUGS (4)
  1. CLARAVIS [Suspect]
     Indication: ACNE
     Dosage: 10 MG QD ORAL
     Route: 048
     Dates: start: 20060211, end: 20060218
  2. CLARAVIS [Suspect]
     Indication: ACNE
     Dosage: 10 MG QD ORAL
     Route: 048
     Dates: start: 20060601, end: 20060601
  3. CLARAVIS [Suspect]
     Indication: ACNE
     Dosage: 10 MG QD ORAL
     Route: 048
     Dates: start: 20050901
  4. TOPAMAX [Concomitant]

REACTIONS (3)
  - DRUG EXPOSURE BEFORE PREGNANCY [None]
  - INAPPROPRIATE SCHEDULE OF DRUG ADMINISTRATION [None]
  - UNINTENDED PREGNANCY [None]
